FAERS Safety Report 13848021 (Version 1)
Quarter: 2017Q3

REPORT INFORMATION
  Report Type: Spontaneous
  Country: US (occurrence: US)
  Receive Date: 20170808
  Receipt Date: 20170808
  Transmission Date: 20171127
  Serious: Yes (Hospitalization)
  Sender: FDA-Public Use
  Company Number: None

PATIENT
  Age: 44 Year
  Sex: Female
  Weight: 71.1 kg

DRUGS (3)
  1. LORAZAPAM [Suspect]
     Active Substance: LORAZEPAM
     Indication: PANIC ATTACK
     Dosage: ?          QUANTITY:60 TABLET(S); TWICE A DAY ORAL?
     Route: 048
     Dates: start: 20170607, end: 20170801
  2. ZOLOFT [Concomitant]
     Active Substance: SERTRALINE HYDROCHLORIDE
  3. ARMOUR THYROID [Concomitant]
     Active Substance: THYROID, PORCINE

REACTIONS (3)
  - Drug withdrawal syndrome [None]
  - Malaise [None]
  - Product substitution issue [None]
